FAERS Safety Report 5971064-9 (Version None)
Quarter: 2008Q4

REPORT INFORMATION
  Report Type: 
  Country: None (occurrence: None)
  Receive Date: 20081128
  Receipt Date: 20081120
  Transmission Date: 20090506
  Serious: Yes (Hospitalization)
  Sender: FDA-Public Use
  Company Number: US-JNJFOC-20081105264

PATIENT
  Sex: Male
  Weight: 113.4 kg

DRUGS (5)
  1. RISPERDAL [Suspect]
     Indication: PANIC DISORDER
     Route: 048
  2. RISPERDAL [Suspect]
     Indication: BIPOLAR DISORDER
     Dosage: 1 MG IN IN MORNING AND 3 MG IN EVENING
     Route: 048
  3. EFFEXOR [Concomitant]
     Indication: PANIC ATTACK
     Route: 065
  4. EFFEXOR [Concomitant]
     Indication: BIPOLAR DISORDER
     Route: 065
  5. XANEX [Concomitant]
     Indication: PANIC ATTACK
     Route: 065

REACTIONS (6)
  - CONVULSION [None]
  - DECREASED APPETITE [None]
  - FLAT AFFECT [None]
  - INSOMNIA [None]
  - JOINT DISLOCATION [None]
  - RENAL FAILURE [None]
